FAERS Safety Report 11390854 (Version 1)
Quarter: 2015Q3

REPORT INFORMATION
  Report Type: Report from Study
  Country: US (occurrence: US)
  Receive Date: 20150818
  Receipt Date: 20150818
  Transmission Date: 20151125
  Serious: No
  Sender: FDA-Public Use
  Company Number: US-AMGEN-USASP2015079199

PATIENT
  Sex: Female

DRUGS (1)
  1. ENBREL [Suspect]
     Active Substance: ETANERCEPT
     Indication: PRODUCT USED FOR UNKNOWN INDICATION
     Dosage: UNK
     Route: 065
     Dates: start: 20150720

REACTIONS (7)
  - Wrong technique in product usage process [Unknown]
  - Joint swelling [Unknown]
  - Back pain [Unknown]
  - Cough [Unknown]
  - Incorrect dose administered [Unknown]
  - Chest pain [Unknown]
  - Infection [Unknown]
